FAERS Safety Report 16617193 (Version 1)
Quarter: 2019Q3

REPORT INFORMATION
  Report Type: Report from Study
  Country: CA (occurrence: CA)
  Receive Date: 20190723
  Receipt Date: 20190723
  Transmission Date: 20191004
  Serious: Yes (Other)
  Sender: FDA-Public Use
  Company Number: CA-EMD SERONO-9105901

PATIENT
  Age: 7 Year
  Sex: Female
  Weight: 18 kg

DRUGS (2)
  1. BIPHENTIN [Concomitant]
     Active Substance: METHYLPHENIDATE
     Indication: ATTENTION DEFICIT/HYPERACTIVITY DISORDER
     Dosage: EXTENDED RELEASE CAPSULE
     Route: 048
  2. SOMATROPIN. [Suspect]
     Active Substance: SOMATROPIN
     Indication: GROWTH HORMONE DEFICIENCY
     Dosage: DOSAGE FORM: NOT SPECIFIED
     Route: 058

REACTIONS (2)
  - Disease recurrence [Recovered/Resolved]
  - Talipes [Recovered/Resolved]
